FAERS Safety Report 24681911 (Version 3)
Quarter: 2025Q2

REPORT INFORMATION
  Report Type: Report from Study
  Country: US (occurrence: US)
  Receive Date: 20241130
  Receipt Date: 20250429
  Transmission Date: 20250716
  Serious: Yes (Other)
  Sender: ABBVIE
  Company Number: US-ABBVIE-6023841

PATIENT
  Age: 71 Year
  Sex: Female

DRUGS (2)
  1. RINVOQ [Suspect]
     Active Substance: UPADACITINIB
     Indication: Rheumatoid arthritis
     Route: 048
     Dates: start: 20240701
  2. RINVOQ [Suspect]
     Active Substance: UPADACITINIB
     Indication: Rheumatoid arthritis
     Route: 048
     Dates: start: 20201027

REACTIONS (8)
  - Epidural injection [Recovering/Resolving]
  - Neuropathy peripheral [Unknown]
  - Back pain [Not Recovered/Not Resolved]
  - Muscle spasms [Unknown]
  - Fall [Unknown]
  - Pain [Not Recovered/Not Resolved]
  - Knee arthroplasty [Recovering/Resolving]
  - Skin atrophy [Recovering/Resolving]

NARRATIVE: CASE EVENT DATE: 20240101
